FAERS Safety Report 13445559 (Version 1)
Quarter: 2017Q2

REPORT INFORMATION
  Report Type: Spontaneous
  Country: US (occurrence: US)
  Receive Date: 20170415
  Receipt Date: 20170415
  Transmission Date: 20170830
  Serious: No
  Sender: FDA-Public Use
  Company Number: US-BION-005852

PATIENT
  Age: 42 Year
  Sex: Male
  Weight: 115.67 kg

DRUGS (1)
  1. ALEVE [Suspect]
     Active Substance: NAPROXEN SODIUM
     Indication: GOUT
     Dosage: 3-4 DOSAGE FORM
     Route: 048

REACTIONS (4)
  - Drug ineffective [Not Recovered/Not Resolved]
  - Product use issue [Unknown]
  - Product physical issue [Unknown]
  - Poor quality drug administered [Not Recovered/Not Resolved]
